FAERS Safety Report 21649869 (Version 1)
Quarter: 2022Q4

REPORT INFORMATION
  Report Type: Spontaneous
  Country: GB (occurrence: GB)
  Receive Date: 20221128
  Receipt Date: 20221128
  Transmission Date: 20230113
  Serious: Yes (Other)
  Sender: FDA-Public Use
  Company Number: GB-SANOFI-01380345

PATIENT
  Age: 4 Year
  Sex: Male

DRUGS (1)
  1. FEXOFENADINE [Suspect]
     Active Substance: FEXOFENADINE HYDROCHLORIDE
     Indication: Respiratory disorder
     Dosage: UNK
     Route: 048

REACTIONS (8)
  - Autism spectrum disorder [Unknown]
  - Dysphagia [Unknown]
  - Taste disorder [Unknown]
  - Respiratory disorder [Unknown]
  - Rhinitis allergic [Unknown]
  - Sleep disorder [Unknown]
  - Off label use [Unknown]
  - Wrong technique in product usage process [Unknown]
